FAERS Safety Report 18592470 (Version 46)
Quarter: 2022Q2

REPORT INFORMATION
  Report Type: Report from Study
  Country: BR (occurrence: BR)
  Receive Date: 20201208
  Receipt Date: 20220425
  Transmission Date: 20220721
  Serious: Yes (Hospitalization, Other)
  Sender: FDA-Public Use
  Company Number: BR-TAKEDA-BR202029221

PATIENT
  Age: 34 Year
  Sex: Female
  Weight: 59 kg

DRUGS (86)
  1. TEDUGLUTIDE [Suspect]
     Active Substance: TEDUGLUTIDE
     Indication: Short-bowel syndrome
     Dosage: 3.3 MILLIGRAM, QD
     Route: 065
     Dates: start: 202008
  2. TEDUGLUTIDE [Suspect]
     Active Substance: TEDUGLUTIDE
     Indication: Short-bowel syndrome
     Dosage: 3.3 MILLIGRAM, QD
     Route: 065
     Dates: start: 202008
  3. TEDUGLUTIDE [Suspect]
     Active Substance: TEDUGLUTIDE
     Indication: Short-bowel syndrome
     Dosage: 3.3 MILLIGRAM, QD
     Route: 065
     Dates: start: 202008
  4. TEDUGLUTIDE [Suspect]
     Active Substance: TEDUGLUTIDE
     Indication: Short-bowel syndrome
     Dosage: 3.3 MILLIGRAM, QD
     Route: 065
     Dates: start: 202008
  5. TEDUGLUTIDE [Suspect]
     Active Substance: TEDUGLUTIDE
     Indication: Gastrointestinal disorder
     Dosage: 3.4 MILLIGRAM, QD
     Route: 065
     Dates: start: 20200806
  6. TEDUGLUTIDE [Suspect]
     Active Substance: TEDUGLUTIDE
     Indication: Gastrointestinal disorder
     Dosage: 3.4 MILLIGRAM, QD
     Route: 065
     Dates: start: 20200806
  7. TEDUGLUTIDE [Suspect]
     Active Substance: TEDUGLUTIDE
     Indication: Gastrointestinal disorder
     Dosage: 3.4 MILLIGRAM, QD
     Route: 065
     Dates: start: 20200806
  8. TEDUGLUTIDE [Suspect]
     Active Substance: TEDUGLUTIDE
     Indication: Gastrointestinal disorder
     Dosage: 3.4 MILLIGRAM, QD
     Route: 065
     Dates: start: 20200806
  9. TEDUGLUTIDE [Suspect]
     Active Substance: TEDUGLUTIDE
     Dosage: 34 MILLILITER
     Route: 065
     Dates: start: 20200806
  10. TEDUGLUTIDE [Suspect]
     Active Substance: TEDUGLUTIDE
     Dosage: 34 MILLILITER
     Route: 065
     Dates: start: 20200806
  11. TEDUGLUTIDE [Suspect]
     Active Substance: TEDUGLUTIDE
     Dosage: 34 MILLILITER
     Route: 065
     Dates: start: 20200806
  12. TEDUGLUTIDE [Suspect]
     Active Substance: TEDUGLUTIDE
     Dosage: 34 MILLILITER
     Route: 065
     Dates: start: 20200806
  13. TEDUGLUTIDE [Suspect]
     Active Substance: TEDUGLUTIDE
     Dosage: 0.34 MILLILITER
     Route: 065
     Dates: start: 20200806
  14. TEDUGLUTIDE [Suspect]
     Active Substance: TEDUGLUTIDE
     Dosage: 0.34 MILLILITER
     Route: 065
     Dates: start: 20200806
  15. TEDUGLUTIDE [Suspect]
     Active Substance: TEDUGLUTIDE
     Dosage: 0.34 MILLILITER
     Route: 065
     Dates: start: 20200806
  16. TEDUGLUTIDE [Suspect]
     Active Substance: TEDUGLUTIDE
     Dosage: 0.34 MILLILITER
     Route: 065
     Dates: start: 20200806
  17. TEDUGLUTIDE [Suspect]
     Active Substance: TEDUGLUTIDE
     Dosage: 0.34 MILLILITER, QD
     Route: 058
     Dates: start: 20200806
  18. TEDUGLUTIDE [Suspect]
     Active Substance: TEDUGLUTIDE
     Dosage: 0.34 MILLILITER, QD
     Route: 058
     Dates: start: 20200806
  19. TEDUGLUTIDE [Suspect]
     Active Substance: TEDUGLUTIDE
     Dosage: 0.34 MILLILITER, QD
     Route: 058
     Dates: start: 20200806
  20. TEDUGLUTIDE [Suspect]
     Active Substance: TEDUGLUTIDE
     Dosage: 0.34 MILLILITER, QD
     Route: 058
     Dates: start: 20200806
  21. TEDUGLUTIDE [Suspect]
     Active Substance: TEDUGLUTIDE
     Dosage: 0.34 MILLILITER, QD
     Route: 058
     Dates: start: 20200806
  22. TEDUGLUTIDE [Suspect]
     Active Substance: TEDUGLUTIDE
     Dosage: 0.34 MILLILITER, QD
     Route: 058
     Dates: start: 20200806
  23. TEDUGLUTIDE [Suspect]
     Active Substance: TEDUGLUTIDE
     Dosage: 0.34 MILLILITER, QD
     Route: 058
     Dates: start: 20200806
  24. TEDUGLUTIDE [Suspect]
     Active Substance: TEDUGLUTIDE
     Dosage: 0.34 MILLILITER, QD
     Route: 058
     Dates: start: 20200806
  25. TEDUGLUTIDE [Suspect]
     Active Substance: TEDUGLUTIDE
     Dosage: 5 MILLIGRAM
     Route: 058
     Dates: start: 20200806
  26. TEDUGLUTIDE [Suspect]
     Active Substance: TEDUGLUTIDE
     Dosage: 5 MILLIGRAM
     Route: 058
     Dates: start: 20200806
  27. TEDUGLUTIDE [Suspect]
     Active Substance: TEDUGLUTIDE
     Dosage: 5 MILLIGRAM
     Route: 058
     Dates: start: 20200806
  28. TEDUGLUTIDE [Suspect]
     Active Substance: TEDUGLUTIDE
     Dosage: 5 MILLIGRAM
     Route: 058
     Dates: start: 20200806
  29. TEDUGLUTIDE [Suspect]
     Active Substance: TEDUGLUTIDE
     Dosage: 0.3 MILLILITER, QD
     Route: 058
     Dates: start: 20200806
  30. TEDUGLUTIDE [Suspect]
     Active Substance: TEDUGLUTIDE
     Dosage: 0.3 MILLILITER, QD
     Route: 058
     Dates: start: 20200806
  31. TEDUGLUTIDE [Suspect]
     Active Substance: TEDUGLUTIDE
     Dosage: 0.3 MILLILITER, QD
     Route: 058
     Dates: start: 20200806
  32. TEDUGLUTIDE [Suspect]
     Active Substance: TEDUGLUTIDE
     Dosage: 0.3 MILLILITER, QD
     Route: 058
     Dates: start: 20200806
  33. TEDUGLUTIDE [Suspect]
     Active Substance: TEDUGLUTIDE
     Dosage: 0.3 MILLILITER, QD
     Route: 058
     Dates: start: 20200806
  34. TEDUGLUTIDE [Suspect]
     Active Substance: TEDUGLUTIDE
     Dosage: 0.3 MILLILITER, QD
     Route: 058
     Dates: start: 20200806
  35. TEDUGLUTIDE [Suspect]
     Active Substance: TEDUGLUTIDE
     Dosage: 0.3 MILLILITER, QD
     Route: 058
     Dates: start: 20200806
  36. TEDUGLUTIDE [Suspect]
     Active Substance: TEDUGLUTIDE
     Dosage: 0.3 MILLILITER, QD
     Route: 058
     Dates: start: 20200806
  37. TEDUGLUTIDE [Suspect]
     Active Substance: TEDUGLUTIDE
     Dosage: 3.3 MILLIGRAM, QD
     Route: 065
     Dates: start: 202008
  38. TEDUGLUTIDE [Suspect]
     Active Substance: TEDUGLUTIDE
     Dosage: 3.3 MILLIGRAM, QD
     Route: 065
     Dates: start: 202008
  39. TEDUGLUTIDE [Suspect]
     Active Substance: TEDUGLUTIDE
     Dosage: 3.3 MILLIGRAM, QD
     Route: 065
     Dates: start: 202008
  40. TEDUGLUTIDE [Suspect]
     Active Substance: TEDUGLUTIDE
     Dosage: 3.3 MILLIGRAM, QD
     Route: 065
     Dates: start: 202008
  41. TEDUGLUTIDE [Suspect]
     Active Substance: TEDUGLUTIDE
     Dosage: 0.3 MILLILITER, QD
     Route: 058
     Dates: start: 20200806
  42. TEDUGLUTIDE [Suspect]
     Active Substance: TEDUGLUTIDE
     Dosage: 0.3 MILLILITER, QD
     Route: 058
     Dates: start: 20200806
  43. TEDUGLUTIDE [Suspect]
     Active Substance: TEDUGLUTIDE
     Dosage: 0.3 MILLILITER, QD
     Route: 058
     Dates: start: 20200806
  44. TEDUGLUTIDE [Suspect]
     Active Substance: TEDUGLUTIDE
     Dosage: 0.3 MILLILITER, QD
     Route: 058
     Dates: start: 20200806
  45. TEDUGLUTIDE [Suspect]
     Active Substance: TEDUGLUTIDE
     Dosage: 0.3 MILLILITER, QD
     Route: 058
     Dates: start: 20200806
  46. TEDUGLUTIDE [Suspect]
     Active Substance: TEDUGLUTIDE
     Dosage: 0.3 MILLILITER, QD
     Route: 058
     Dates: start: 20200806
  47. TEDUGLUTIDE [Suspect]
     Active Substance: TEDUGLUTIDE
     Dosage: 0.3 MILLILITER, QD
     Route: 058
     Dates: start: 20200806
  48. TEDUGLUTIDE [Suspect]
     Active Substance: TEDUGLUTIDE
     Dosage: 0.3 MILLILITER, QD
     Route: 058
     Dates: start: 20200806
  49. TEDUGLUTIDE [Suspect]
     Active Substance: TEDUGLUTIDE
     Dosage: 0.3 MILLILITER, QD
     Route: 058
     Dates: start: 20200806
  50. TEDUGLUTIDE [Suspect]
     Active Substance: TEDUGLUTIDE
     Dosage: 0.3 MILLILITER, QD
     Route: 058
     Dates: start: 20200806
  51. TEDUGLUTIDE [Suspect]
     Active Substance: TEDUGLUTIDE
     Dosage: 0.3 MILLILITER, QD
     Route: 058
     Dates: start: 20200806
  52. TEDUGLUTIDE [Suspect]
     Active Substance: TEDUGLUTIDE
     Dosage: 0.3 MILLILITER, QD
     Route: 058
     Dates: start: 20200806
  53. TEDUGLUTIDE [Suspect]
     Active Substance: TEDUGLUTIDE
     Dosage: 0.3 MILLILITER, QD
     Route: 058
     Dates: start: 20200806
  54. TEDUGLUTIDE [Suspect]
     Active Substance: TEDUGLUTIDE
     Dosage: 0.3 MILLILITER, QD
     Route: 058
     Dates: start: 20200806
  55. TEDUGLUTIDE [Suspect]
     Active Substance: TEDUGLUTIDE
     Dosage: 0.3 MILLILITER, QD
     Route: 058
     Dates: start: 20200806
  56. TEDUGLUTIDE [Suspect]
     Active Substance: TEDUGLUTIDE
     Dosage: 0.3 MILLILITER, QD
     Route: 058
     Dates: start: 20200806
  57. TEDUGLUTIDE [Suspect]
     Active Substance: TEDUGLUTIDE
     Dosage: 3 MILLIGRAM, QD
     Route: 065
     Dates: start: 20200806
  58. TEDUGLUTIDE [Suspect]
     Active Substance: TEDUGLUTIDE
     Dosage: 3 MILLIGRAM, QD
     Route: 065
     Dates: start: 20200806
  59. TEDUGLUTIDE [Suspect]
     Active Substance: TEDUGLUTIDE
     Dosage: 3 MILLIGRAM, QD
     Route: 065
     Dates: start: 20200806
  60. TEDUGLUTIDE [Suspect]
     Active Substance: TEDUGLUTIDE
     Dosage: 3 MILLIGRAM, QD
     Route: 065
     Dates: start: 20200806
  61. TEDUGLUTIDE [Suspect]
     Active Substance: TEDUGLUTIDE
     Dosage: UNK, QD
     Route: 058
     Dates: start: 20200806
  62. TEDUGLUTIDE [Suspect]
     Active Substance: TEDUGLUTIDE
     Dosage: UNK, QD
     Route: 058
     Dates: start: 20200806
  63. TEDUGLUTIDE [Suspect]
     Active Substance: TEDUGLUTIDE
     Dosage: UNK, QD
     Route: 058
     Dates: start: 20200806
  64. TEDUGLUTIDE [Suspect]
     Active Substance: TEDUGLUTIDE
     Dosage: UNK, QD
     Route: 058
     Dates: start: 20200806
  65. DOMPERIDONE [Suspect]
     Active Substance: DOMPERIDONE
     Indication: Illness
     Dosage: 1 DOSAGE FORM
     Route: 065
  66. DOMPERIDONE [Suspect]
     Active Substance: DOMPERIDONE
     Indication: Nausea
  67. METOCLOPRAMIDE [Suspect]
     Active Substance: METOCLOPRAMIDE
     Indication: Product used for unknown indication
     Dosage: UNK
     Route: 065
  68. BACTRIM [Suspect]
     Active Substance: SULFAMETHOXAZOLE\TRIMETHOPRIM
     Indication: Product used for unknown indication
     Dosage: UNK
     Route: 065
     Dates: end: 20210326
  69. ESOMEPRAZOLE [Suspect]
     Active Substance: ESOMEPRAZOLE
     Indication: Prophylaxis against gastrointestinal ulcer
     Dosage: 20 MILLIGRAM, QD
     Route: 065
     Dates: start: 2017, end: 20201025
  70. ESOMEPRAZOLE [Suspect]
     Active Substance: ESOMEPRAZOLE
     Dosage: 20 MILLIGRAM
     Route: 065
     Dates: start: 2018
  71. ACETAMINOPHEN\CHLORPHENIRAMINE MALEATE\PHENYLEPHRINE HYDROCHLORIDE [Suspect]
     Active Substance: ACETAMINOPHEN\CHLORPHENIRAMINE MALEATE\PHENYLEPHRINE HYDROCHLORIDE
     Indication: Influenza
     Dosage: UNK
     Route: 065
     Dates: start: 202110
  72. PROPOLIS WAX [Suspect]
     Active Substance: PROPOLIS WAX
     Indication: Product used for unknown indication
     Dosage: UNK
     Route: 065
  73. PAREGORICO [Concomitant]
     Indication: Diarrhoea
     Dosage: 48 GTT DROPS, TID
     Route: 065
     Dates: start: 2017
  74. CHOLESTYRAMINE [Concomitant]
     Active Substance: CHOLESTYRAMINE
     Indication: Bile output
     Dosage: 4 MILLIGRAM, BID
     Route: 065
     Dates: start: 2017
  75. NEXIUM I.V. [Concomitant]
     Active Substance: ESOMEPRAZOLE SODIUM
     Indication: Gastric disorder
     Dosage: 20 MILLIGRAM, QD
     Route: 065
     Dates: start: 2017
  76. VITAMINS NOS [Concomitant]
     Active Substance: VITAMINS
     Indication: Vitamin supplementation
     Dosage: UNK
     Route: 065
  77. MINERALS\VITAMINS [Concomitant]
     Active Substance: MINERALS\VITAMINS
     Indication: Vitamin supplementation
     Dosage: UNK UNK, QD
     Route: 065
     Dates: start: 2017
  78. PROPOFOL [Concomitant]
     Active Substance: PROPOFOL
     Dosage: UNK
     Route: 065
  79. HISTAMINE [Concomitant]
     Active Substance: HISTAMINE
     Dosage: UNK
     Route: 065
  80. PANCREATIN;SIMETICONE [Concomitant]
     Indication: Nausea
     Dosage: UNK UNK, BID
     Route: 065
  81. EXPEC [Concomitant]
     Route: 065
  82. BENALET [Concomitant]
     Active Substance: AMMONIUM CHLORIDE\DIPHENHYDRAMINE HYDROCHLORIDE\SODIUM CITRATE
     Route: 065
  83. PANTOPRAZOLE [Concomitant]
     Active Substance: PANTOPRAZOLE
     Indication: Gastritis prophylaxis
     Dosage: 40 MILLIGRAM, QD
     Route: 065
     Dates: start: 2017
  84. PAREGORIC [Concomitant]
     Active Substance: MORPHINE
     Indication: Diarrhoea
     Dosage: 48 GTT DROPS, TID
     Route: 065
     Dates: start: 2017
  85. VITAMINS [Concomitant]
     Active Substance: VITAMINS
     Indication: Vitamin supplementation
     Dosage: UNK UNK, QD
     Route: 065
     Dates: start: 2017
  86. CHOLESTYRAMINE [Concomitant]
     Active Substance: CHOLESTYRAMINE
     Indication: Bile duct stone
     Dosage: 4 MILLIGRAM, BID
     Route: 065
     Dates: start: 2017

REACTIONS (116)
  - Nausea [Recovered/Resolved]
  - Vomiting [Not Recovered/Not Resolved]
  - Parenteral nutrition [Unknown]
  - Unevaluable event [Unknown]
  - Depressed mood [Not Recovered/Not Resolved]
  - Adverse event [Unknown]
  - Procedural haemorrhage [Unknown]
  - Device occlusion [Unknown]
  - Gastrointestinal bacterial overgrowth [Recovered/Resolved]
  - Dermatitis [Unknown]
  - Blood albumin decreased [Not Recovered/Not Resolved]
  - Catheter removal [Unknown]
  - Asthenopia [Recovering/Resolving]
  - Rash pruritic [Not Recovered/Not Resolved]
  - Application site pain [Recovered/Resolved]
  - Salivary hypersecretion [Not Recovered/Not Resolved]
  - Mouth injury [Unknown]
  - Dizziness [Unknown]
  - Dyspepsia [Unknown]
  - Irritable bowel syndrome [Unknown]
  - Arthralgia [Unknown]
  - Tendonitis [Unknown]
  - Weight fluctuation [Not Recovered/Not Resolved]
  - Blister [Unknown]
  - Crying [Unknown]
  - Procedural pain [Unknown]
  - Alopecia [Recovered/Resolved]
  - Dry mouth [Recovered/Resolved]
  - Polyuria [Unknown]
  - Application site discolouration [Recovering/Resolving]
  - Mouth swelling [Not Recovered/Not Resolved]
  - Oral mucosal blistering [Not Recovered/Not Resolved]
  - Joint swelling [Unknown]
  - Abnormal faeces [Recovered/Resolved]
  - Faecal volume increased [Recovering/Resolving]
  - Pigmentation disorder [Recovering/Resolving]
  - Contusion [Recovering/Resolving]
  - Peripheral swelling [Recovered/Resolved]
  - Hypoaesthesia oral [Unknown]
  - Oral pain [Unknown]
  - Back pain [Unknown]
  - Oral discomfort [Unknown]
  - Thermal burn [Unknown]
  - Limb injury [Unknown]
  - Feeding disorder [Unknown]
  - Tension [Unknown]
  - Heavy menstrual bleeding [Not Recovered/Not Resolved]
  - Injury associated with device [Not Recovered/Not Resolved]
  - Chloasma [Not Recovered/Not Resolved]
  - Pain in extremity [Recovered/Resolved]
  - Motion sickness [Not Recovered/Not Resolved]
  - Drug hypersensitivity [Recovered/Resolved]
  - Muscle spasms [Recovering/Resolving]
  - Dehydration [Recovering/Resolving]
  - Catheter site pain [Recovering/Resolving]
  - Discouragement [Recovering/Resolving]
  - Blood albumin increased [Not Recovered/Not Resolved]
  - Asthenia [Unknown]
  - Blood zinc decreased [Recovering/Resolving]
  - Injection site haemorrhage [Recovering/Resolving]
  - Diarrhoea [Unknown]
  - Menstruation irregular [Recovering/Resolving]
  - Catheter site erythema [Unknown]
  - Drug interaction [Unknown]
  - Memory impairment [Unknown]
  - Weight increased [Unknown]
  - Varicose vein [Not Recovered/Not Resolved]
  - Discomfort [Recovered/Resolved]
  - Catheter site related reaction [Unknown]
  - Rash macular [Not Recovered/Not Resolved]
  - Heart rate increased [Recovered/Resolved]
  - Injection site pain [Recovered/Resolved]
  - Abdominal pain [Recovered/Resolved]
  - Abdominal pain upper [Recovering/Resolving]
  - Blood potassium decreased [Not Recovered/Not Resolved]
  - Blood phosphorus decreased [Not Recovered/Not Resolved]
  - Tremor [Not Recovered/Not Resolved]
  - Weight decreased [Recovered/Resolved]
  - Catheter site inflammation [Unknown]
  - Therapy interrupted [Unknown]
  - Disease recurrence [Not Recovered/Not Resolved]
  - Gastrointestinal disorder [Unknown]
  - Abdominal distension [Unknown]
  - Flatulence [Unknown]
  - Influenza [Unknown]
  - Somnolence [Unknown]
  - Oropharyngeal pain [Recovering/Resolving]
  - Rhinorrhoea [Recovering/Resolving]
  - Pain [Recovering/Resolving]
  - Fasting [Recovered/Resolved]
  - Blood glucose decreased [Recovered/Resolved]
  - Product use issue [Unknown]
  - Red blood cell abnormality [Unknown]
  - Haemoglobin decreased [Unknown]
  - Haematocrit decreased [Unknown]
  - Blood creatinine decreased [Unknown]
  - Aspartate aminotransferase increased [Unknown]
  - Alanine aminotransferase increased [Unknown]
  - Gingival pain [Unknown]
  - Liver disorder [Unknown]
  - Dysphonia [Recovering/Resolving]
  - Frequent bowel movements [Unknown]
  - Procedural complication [Recovered/Resolved]
  - Gastritis [Unknown]
  - Electrolyte depletion [Recovered/Resolved]
  - Feeling abnormal [Unknown]
  - Gait disturbance [Recovered/Resolved]
  - Vitamin B complex deficiency [Recovering/Resolving]
  - Gingival discomfort [Not Recovered/Not Resolved]
  - Hypoglycaemia [Recovering/Resolving]
  - Eructation [Recovering/Resolving]
  - Visual impairment [Unknown]
  - Product label issue [Unknown]
  - Incorrect dose administered [Unknown]
  - Sensory disturbance [Recovered/Resolved]
  - Application site discomfort [Unknown]

NARRATIVE: CASE EVENT DATE: 20200806
